FAERS Safety Report 7913197-3 (Version None)
Quarter: 2011Q4

REPORT INFORMATION
  Report Type: 
  Country: None (occurrence: None)
  Receive Date: 20111114
  Receipt Date: 20111106
  Transmission Date: 20120403
  Serious: Yes (Hospitalization)
  Sender: FDA-Public Use
  Company Number: FR-ROCHE-679709

PATIENT
  Sex: Male
  Weight: 45.5 kg

DRUGS (22)
  1. BISOPROLOL [Concomitant]
     Dates: start: 20080513, end: 20100105
  2. WARFARIN SODIUM [Concomitant]
     Dosage: DRUG: WARFARINE
     Dates: start: 20080507, end: 20100105
  3. OMEPRAZOLE [Concomitant]
  4. RACECADOTRIL [Concomitant]
     Dates: start: 20050511, end: 20100105
  5. ENOXAPARIN [Concomitant]
  6. ZOLPIDEM [Concomitant]
     Dosage: FREQUENCY: PM
  7. SODIUM POLYSTYRENE SULFONATE [Concomitant]
     Dosage: AS NEEDED
  8. SACCHAROSE [Concomitant]
     Dosage: DRUG: SACCHAROSE FERRIQUE
  9. BISOPROLOL [Concomitant]
  10. CALCIUM CARBONATE [Concomitant]
     Dosage: TDD: 1/DAY
  11. TRAMADOL HYDROCHLORIDE [Concomitant]
     Dosage: DOSE: 100; FREQUENCY: PRN
     Dates: start: 20080609, end: 20100105
  12. FLUNARIZINE [Concomitant]
     Dosage: TDD: 2 CP
     Dates: start: 20070104, end: 20100105
  13. MIRCERA [Suspect]
     Indication: NEPHROGENIC ANAEMIA
     Dosage: L
     Route: 042
  14. ALPRAZOLAM [Concomitant]
     Dosage: TDD: 1/D
     Dates: start: 20020925, end: 20100105
  15. CLONAZEPAM [Concomitant]
     Dates: start: 20091218, end: 20100105
  16. ROSUVASTATIN [Concomitant]
     Dosage: DRUG: ROSUVASTATINE
  17. OMEPRAZOLE [Concomitant]
  18. SEVELAMER [Concomitant]
     Dosage: TDD: 2/D
  19. ACETAMINOPHEN [Concomitant]
     Dosage: AS NEEDED
  20. SODIUM POLYSTYRENE SULFONATE [Concomitant]
     Dosage: DRUG: POLYSTYRENE SULFONATE SODIUM
     Dates: start: 20060104, end: 20091218
  21. AMIODARONE HCL [Concomitant]
     Dosage: TDD: 1/D
  22. AMIODARONE HCL [Concomitant]

REACTIONS (4)
  - SEPTIC SHOCK [None]
  - CHOLECYSTITIS ACUTE [None]
  - MALNUTRITION [None]
  - PNEUMONIA [None]
